FAERS Safety Report 10098315 (Version 2)
Quarter: 2014Q2

REPORT INFORMATION
  Report Type: Spontaneous
  Country: SE (occurrence: SE)
  Receive Date: 20140423
  Receipt Date: 20140604
  Transmission Date: 20141212
  Serious: Yes (Other)
  Sender: FDA-Public Use
  Company Number: SE-ROCHE-1384381

PATIENT
  Age: 42 Year
  Sex: Male

DRUGS (1)
  1. PEGASYS [Suspect]
     Indication: CHRONIC HEPATITIS C
     Route: 065
     Dates: end: 20080227

REACTIONS (1)
  - Nerve injury [Unknown]
